FAERS Safety Report 8471146-6 (Version None)
Quarter: 2012Q2

REPORT INFORMATION
  Report Type: 
  Country: None (occurrence: None)
  Receive Date: 20120620
  Receipt Date: 20120606
  Transmission Date: 20120825
  Serious: Yes (Hospitalization, Other)
  Sender: FDA-Public Use
  Company Number: DSJ-2012-07013

PATIENT
  Age: 54 Year
  Sex: Female

DRUGS (7)
  1. BENICAR HCT [Suspect]
     Indication: HYPERTENSION
     Dosage: 40/25 MG (1 IN 1 D), PER ORAL
     Route: 048
     Dates: start: 20120411
  2. BENICAR HCT [Suspect]
     Indication: HYPERTENSION
     Dosage: 40/25 MG (1 IN 1 D), PER ORAL
     Route: 048
     Dates: start: 20101101, end: 20120404
  3. SPIRONOLACTONE [Concomitant]
  4. HYDRALAZINE HCL [Concomitant]
  5. SERTRALINE HYDROCHLORIDE [Concomitant]
  6. SIMVASTATIN [Concomitant]
  7. LECARNIDIPINE (LERCANIDIPINE) (LERCANIDIPINE) [Concomitant]

REACTIONS (7)
  - HEADACHE [None]
  - DRUG ADMINISTRATION ERROR [None]
  - THERAPY CESSATION [None]
  - BLOOD PRESSURE INCREASED [None]
  - ABDOMINAL PAIN [None]
  - CHEST PAIN [None]
  - CHEST DISCOMFORT [None]
